FAERS Safety Report 7346091-X (Version None)
Quarter: 2011Q1

REPORT INFORMATION
  Report Type: 
  Country: None (occurrence: None)
  Receive Date: 20110311
  Receipt Date: 20090625
  Transmission Date: 20110831
  Serious: Yes (Hospitalization, Other)
  Sender: FDA-Public Use
  Company Number: US-BAYER-200924948NA

PATIENT
  Sex: Male
  Weight: 106.12 kg

DRUGS (15)
  1. FRESH FROZEN PLASMA [Concomitant]
     Indication: PRODUCT USED FOR UNKNOWN INDICATION
     Dosage: 2 U, UNK
     Route: 042
     Dates: start: 20071031
  2. CRYOPRECIPITATES [Concomitant]
     Indication: PRODUCT USED FOR UNKNOWN INDICATION
     Dosage: 5 U, UNK
     Route: 042
     Dates: start: 20071031
  3. SOLU-MEDROL [Concomitant]
     Indication: PRODUCT USED FOR UNKNOWN INDICATION
     Dosage: 2850 MG, UNK
     Route: 042
     Dates: start: 20071031, end: 20071031
  4. TRASYLOL [Suspect]
     Indication: CORONARY ARTERY BYPASS
     Dosage: 1 ML (TEST DOSE)
     Route: 042
     Dates: start: 20071031, end: 20071031
  5. PLATELETS [Concomitant]
     Indication: PRODUCT USED FOR UNKNOWN INDICATION
     Dosage: 8 U, UNK
     Route: 042
     Dates: start: 20071031
  6. TRASYLOL [Suspect]
     Dosage: 199 ML FOLLOWED BY 50 CC/HR
     Route: 042
     Dates: start: 20071031, end: 20071031
  7. LEVOPHED [Concomitant]
     Indication: PRODUCT USED FOR UNKNOWN INDICATION
     Dosage: UNK
     Route: 042
     Dates: start: 20071031
  8. LOPRESSOR [Concomitant]
     Indication: PRODUCT USED FOR UNKNOWN INDICATION
     Dosage: 50 MG, UNK
     Route: 048
  9. COUMADIN [Concomitant]
     Indication: PRODUCT USED FOR UNKNOWN INDICATION
     Dosage: 5 MG, QD
     Dates: start: 19860101
  10. CORDARONE [Concomitant]
     Indication: PRODUCT USED FOR UNKNOWN INDICATION
     Dosage: UNK
     Route: 042
     Dates: start: 20071031
  11. INSULIN [Concomitant]
     Indication: PRODUCT USED FOR UNKNOWN INDICATION
     Dosage: UNK
     Route: 042
     Dates: start: 20071031
  12. LOPRESSOR [Concomitant]
     Dosage: 5 MG, UNK
     Route: 042
     Dates: start: 20071031, end: 20071031
  13. UNKNOWN [Concomitant]
     Indication: PRODUCT USED FOR UNKNOWN INDICATION
     Dosage: 7.5 U, UNK
     Dates: start: 20071031
  14. MANNITOL [Concomitant]
     Indication: PRODUCT USED FOR UNKNOWN INDICATION
     Dosage: 47.5 MG, UNK
     Route: 042
     Dates: start: 20071031, end: 20071031
  15. EPINEPHRINE [Concomitant]
     Indication: PRODUCT USED FOR UNKNOWN INDICATION
     Dosage: UNK
     Route: 042
     Dates: start: 20071031

REACTIONS (17)
  - STRESS [None]
  - ANXIETY [None]
  - PAIN [None]
  - INJURY [None]
  - MEMORY IMPAIRMENT [None]
  - DYSPHONIA [None]
  - ANGER [None]
  - RENAL IMPAIRMENT [None]
  - ANHEDONIA [None]
  - CARDIAC ARREST [None]
  - EMOTIONAL DISTRESS [None]
  - RENAL INJURY [None]
  - RESPIRATORY FAILURE [None]
  - RENAL FAILURE [None]
  - MULTI-ORGAN FAILURE [None]
  - UNEVALUABLE EVENT [None]
  - FEAR [None]
